FAERS Safety Report 8434153 (Version 5)
Quarter: 2012Q4

REPORT INFORMATION
  Report Type: 
  Country: US (occurrence: US)
  Receive Date: 20120301
  Receipt Date: 20121210
  Transmission Date: 20130627
  Serious: Yes (Hospitalization)
  Sender: FDA-Public Use
  Company Number: US-BIOGENIDEC-2012BI006817

PATIENT
  Age: 72 Year
  Sex: Male

DRUGS (1)
  1. TYSABRI [Suspect]
     Indication: MULTIPLE SCLEROSIS
     Route: 042
     Dates: start: 20100713, end: 20120124

REACTIONS (4)
  - Knee arthroplasty [Not Recovered/Not Resolved]
  - Arthropathy [Recovered/Resolved]
  - Spinal fusion surgery [Unknown]
  - Arthralgia [Not Recovered/Not Resolved]
